FAERS Safety Report 19283667 (Version 1)
Quarter: 2021Q2

REPORT INFORMATION
  Report Type: Report from Study
  Country: US (occurrence: US)
  Receive Date: 20210520
  Receipt Date: 20210520
  Transmission Date: 20210717
  Serious: No
  Sender: FDA-Public Use
  Company Number: NVSC2021US113700

PATIENT
  Sex: Female

DRUGS (1)
  1. ENTRESTO [Suspect]
     Active Substance: SACUBITRIL\VALSARTAN
     Indication: CARDIAC FAILURE
     Dosage: 0.5 MG, BID (12/13MG TWICE DAILY)
     Route: 048
     Dates: start: 202008

REACTIONS (2)
  - Wrong technique in product usage process [Unknown]
  - Product prescribing error [Unknown]
